FAERS Safety Report 8347558-8 (Version None)
Quarter: 2012Q2

REPORT INFORMATION
  Report Type: 
  Country: None (occurrence: None)
  Receive Date: 20120509
  Receipt Date: 20120427
  Transmission Date: 20120825
  Serious: Yes (Hospitalization, Other)
  Sender: FDA-Public Use
  Company Number: TR-AMGEN-TURSP2012019007

PATIENT
  Age: 55 Year
  Sex: Female

DRUGS (2)
  1. METHOTREXATE [Concomitant]
     Dosage: UNK
  2. ENBREL [Suspect]
     Indication: ANKYLOSING SPONDYLITIS
     Dosage: 50 MG, WEEKLY
     Route: 058
     Dates: start: 20081101

REACTIONS (7)
  - DYSPNOEA [None]
  - PAIN [None]
  - ANGIOGRAM [None]
  - HEPATIC ENZYME ABNORMAL [None]
  - SWELLING [None]
  - DRUG INEFFECTIVE [None]
  - EMBOLISM [None]
